FAERS Safety Report 15098320 (Version 1)
Quarter: 2018Q3

REPORT INFORMATION
  Report Type: Spontaneous
  Country: DE (occurrence: DE)
  Receive Date: 20180702
  Receipt Date: 20180702
  Transmission Date: 20181010
  Serious: Yes (Other)
  Sender: FDA-Public Use
  Company Number: DE-BAYER-2018-118435

PATIENT
  Age: 51 Year
  Sex: Female
  Weight: 59 kg

DRUGS (1)
  1. CIPROFLOXACIN. [Suspect]
     Active Substance: CIPROFLOXACIN
     Indication: CYSTITIS
     Route: 048

REACTIONS (14)
  - Insomnia [Unknown]
  - Bone pain [Not Recovered/Not Resolved]
  - Arthralgia [Not Recovered/Not Resolved]
  - Autoimmune disorder [Unknown]
  - Joint swelling [Unknown]
  - Myalgia [Not Recovered/Not Resolved]
  - Panic attack [Unknown]
  - Abdominal discomfort [Unknown]
  - Asthenia [Unknown]
  - Palpitations [Unknown]
  - Back pain [Not Recovered/Not Resolved]
  - Basedow^s disease [Unknown]
  - Depression [Unknown]
  - Decreased immune responsiveness [Unknown]
